FAERS Safety Report 4941577-7 (Version None)
Quarter: 2006Q1

REPORT INFORMATION
  Report Type: 
  Country: None (occurrence: None)
  Receive Date: 20060308
  Receipt Date: 20060224
  Transmission Date: 20060701
  Serious: Yes (Other)
  Sender: FDA-Public Use
  Company Number: 2006JP000312

PATIENT
  Age: 73 Year
  Sex: Male
  Weight: 49.8 kg

DRUGS (8)
  1. FUNGUARD (MICAFUNGIN) INJECTION [Suspect]
     Indication: BRONCHOPULMONARY ASPERGILLOSIS
     Dosage: 150 MG, UID/QD, IV DRIP
     Route: 041
     Dates: start: 20060111, end: 20060130
  2. RIFADIN (RIFAMPICIN) PER ORAL NOS [Concomitant]
  3. ETHAMBUTOL (ETHAMBUTOL) PER ORAL NOS [Concomitant]
  4. KLARICID (CLARITHROMYCIN) PER ORAL NOS [Concomitant]
  5. CRAVIT (LEVOFLOXACIN) PER ORAL NOS [Concomitant]
  6. PREDNISOLONE [Concomitant]
  7. OMEPRAL (OMEPRAZOLE) PER ORAL NOS [Concomitant]
  8. MAGLAX (MAGNESIUM OXIDE) PER ORAL NOS [Concomitant]

REACTIONS (2)
  - ORAL INTAKE REDUCED [None]
  - PANCREATITIS ACUTE [None]
